FAERS Safety Report 25048134 (Version 2)
Quarter: 2025Q1

REPORT INFORMATION
  Report Type: Report from Study
  Country: CA (occurrence: CA)
  Receive Date: 20250306
  Receipt Date: 20250319
  Transmission Date: 20250408
  Serious: Yes (Hospitalization)
  Sender: AMGEN
  Company Number: CA-AMGEN-CANSP2025038552

PATIENT
  Age: 71 Year
  Sex: Male

DRUGS (1)
  1. MVASI [Suspect]
     Active Substance: BEVACIZUMAB-AWWB
     Indication: Radiation necrosis
     Dosage: 7.5 MILLIGRAM/KILOGRAM, Q3WK
     Route: 065
     Dates: start: 20250206

REACTIONS (5)
  - Feeding disorder [Unknown]
  - Dysphagia [Unknown]
  - Dehydration [Unknown]
  - Off label use [Unknown]
  - Hospice care [Unknown]

NARRATIVE: CASE EVENT DATE: 20250201
